FAERS Safety Report 7798125-6 (Version None)
Quarter: 2011Q4

REPORT INFORMATION
  Report Type: 
  Country: None (occurrence: None)
  Receive Date: 20111005
  Receipt Date: 20110927
  Transmission Date: 20120403
  Serious: No
  Sender: FDA-Public Use
  Company Number: US-B.I. PHARMACEUTICALS,INC./RIDGEFIELD-2011-BP-21874BP

PATIENT
  Sex: Female

DRUGS (2)
  1. CARTIA XT [Concomitant]
     Indication: ATRIAL FIBRILLATION
     Dosage: 240 MG
     Route: 048
  2. PRADAXA [Suspect]
     Indication: ATRIAL FIBRILLATION
     Dosage: 300 MG
     Route: 048
     Dates: start: 20110701, end: 20110909

REACTIONS (5)
  - HALLUCINATION [None]
  - DYSPNOEA [None]
  - DIARRHOEA [None]
  - ANXIETY [None]
  - MELAENA [None]
